FAERS Safety Report 9216859 (Version 3)
Quarter: 2013Q2

REPORT INFORMATION
  Report Type: Spontaneous
  Country: US (occurrence: None)
  Receive Date: 20130403
  Receipt Date: 20130524
  Transmission Date: 20140414
  Serious: Yes (Other)
  Sender: FDA-Public Use
  Company Number: JPI-P-030805

PATIENT
  Age: 45 Year
  Sex: Female
  Weight: 117.94 kg

DRUGS (7)
  1. XYREM [Suspect]
     Indication: CATAPLEXY
     Dosage: 3  GM (3  GM, 2 IN 1 D), ORAL
     Route: 048
     Dates: start: 201208
  2. ZOLPIDEM TARTRATE [Concomitant]
  3. ALPRAZOLAM [Concomitant]
  4. CARISOPRODOL [Concomitant]
  5. LEVOTHYROXINE [Concomitant]
  6. VITAMIN D [Concomitant]
  7. MECLIZINE [Concomitant]

REACTIONS (21)
  - Weight decreased [None]
  - Convulsion [None]
  - Affect lability [None]
  - Dyskinesia [None]
  - Moaning [None]
  - Pain [None]
  - Anxiety [None]
  - Confusional state [None]
  - Logorrhoea [None]
  - Adverse event [None]
  - Cataplexy [None]
  - Syncope [None]
  - Decreased appetite [None]
  - Thirst [None]
  - Lyme disease [None]
  - Restlessness [None]
  - Insomnia [None]
  - Vertigo [None]
  - Memory impairment [None]
  - Disturbance in attention [None]
  - Crying [None]
